FAERS Safety Report 23269498 (Version 3)
Quarter: 2023Q4

REPORT INFORMATION
  Report Type: Spontaneous
  Country: US (occurrence: US)
  Receive Date: 20231207
  Receipt Date: 20231230
  Transmission Date: 20240110
  Serious: Yes (Other)
  Sender: FDA-Public Use
  Company Number: US-CELLTRION INC.-2023US023216

PATIENT

DRUGS (1)
  1. INFLECTRA [Suspect]
     Active Substance: INFLIXIMAB-DYYB
     Indication: Colitis ulcerative
     Dosage: UNK
     Route: 065
     Dates: end: 20230102

REACTIONS (4)
  - Colitis ulcerative [Recovered/Resolved]
  - COVID-19 [Unknown]
  - Headache [Recovered/Resolved]
  - Drug ineffective [Recovered/Resolved]
